FAERS Safety Report 7115654-9 (Version None)
Quarter: 2010Q4

REPORT INFORMATION
  Report Type: 
  Country: None (occurrence: None)
  Receive Date: 20101122
  Receipt Date: 20101116
  Transmission Date: 20110411
  Serious: Yes (Death, Life-Threatening)
  Sender: FDA-Public Use
  Company Number: CH-ELI_LILLY_AND_COMPANY-CH201011005078

PATIENT
  Sex: Male
  Weight: 80 kg

DRUGS (1)
  1. EFFIENT [Suspect]
     Indication: ACUTE CORONARY SYNDROME
     Dosage: UNK, UNKNOWN
     Route: 065

REACTIONS (3)
  - CEREBRAL INFARCTION [None]
  - FALL [None]
  - SUBDURAL HAEMORRHAGE [None]
